FAERS Safety Report 6903729-6 (Version None)
Quarter: 2010Q3

REPORT INFORMATION
  Report Type: 
  Country: None (occurrence: None)
  Receive Date: 20100804
  Receipt Date: 20081122
  Transmission Date: 20110219
  Serious: Yes (Other)
  Sender: FDA-Public Use
  Company Number: US-PFIZER INC-2008099433

PATIENT
  Age: 50 Year
  Sex: Female
  Weight: 55.3 kg

DRUGS (5)
  1. LYRICA [Suspect]
     Indication: FIBROMYALGIA
     Dates: start: 20080101
  2. MOBIC [Concomitant]
  3. FLEXERIL [Concomitant]
  4. PREMPRO [Concomitant]
  5. VITAMIN TAB [Concomitant]

REACTIONS (3)
  - DIZZINESS [None]
  - MEMORY IMPAIRMENT [None]
  - VISION BLURRED [None]
